FAERS Safety Report 11631150 (Version 2)
Quarter: 2016Q1

REPORT INFORMATION
  Report Type: Spontaneous
  Country: US (occurrence: US)
  Receive Date: 20151014
  Receipt Date: 20160205
  Transmission Date: 20160525
  Serious: Yes (Other)
  Sender: FDA-Public Use
  Company Number: US-TEVA-600366USA

PATIENT
  Age: 48 Year
  Sex: Female

DRUGS (1)
  1. COPAXONE [Suspect]
     Active Substance: GLATIRAMER ACETATE
     Indication: MULTIPLE SCLEROSIS
     Dates: start: 20150506

REACTIONS (16)
  - Deafness unilateral [Unknown]
  - Swollen tongue [Recovered/Resolved]
  - Injection site reaction [Recovered/Resolved]
  - Dyspnoea [Recovered/Resolved]
  - Dizziness [Unknown]
  - Paraesthesia [Unknown]
  - Blindness [Recovered/Resolved]
  - Dysphagia [Recovered/Resolved]
  - Hypersensitivity [Unknown]
  - Urticaria [Unknown]
  - Nausea [Unknown]
  - Throat tightness [Unknown]
  - Chest pain [Unknown]
  - Pruritus [Recovered/Resolved]
  - Vision blurred [Unknown]
  - Urticaria [Recovered/Resolved]

NARRATIVE: CASE EVENT DATE: 20151006
